FAERS Safety Report 8248384-0 (Version None)
Quarter: 2012Q1

REPORT INFORMATION
  Report Type: 
  Country: None (occurrence: None)
  Receive Date: 20120330
  Receipt Date: 20120316
  Transmission Date: 20120608
  Serious: Yes (Other)
  Sender: FDA-Public Use
  Company Number: CHPA2012US004363

PATIENT
  Sex: Male

DRUGS (1)
  1. EXCEDRIN (MIGRAINE) [Suspect]
     Indication: MALAISE
     Dosage: UNK DF, ONCE/SINGLE
     Route: 048
     Dates: start: 20120301, end: 20120301

REACTIONS (5)
  - OFF LABEL USE [None]
  - CONDITION AGGRAVATED [None]
  - MALAISE [None]
  - EXPIRED DRUG ADMINISTERED [None]
  - HEAT EXHAUSTION [None]
